FAERS Safety Report 5314480-0 (Version None)
Quarter: 2007Q2

REPORT INFORMATION
  Report Type: 
  Country: None (occurrence: None)
  Receive Date: 20070502
  Receipt Date: 20061108
  Transmission Date: 20071010
  Serious: No
  Sender: FDA-Public Use
  Company Number: US-GLAXOSMITHKLINE-A0626723A

PATIENT
  Age: 9 Year
  Sex: Female

DRUGS (2)
  1. AMOXIL [Suspect]
     Dosage: 2TSP TWICE PER DAY
     Route: 048
     Dates: start: 20061105
  2. INSULIN [Concomitant]

REACTIONS (1)
  - BLOOD GLUCOSE INCREASED [None]
